FAERS Safety Report 8232133-6 (Version None)
Quarter: 2012Q1

REPORT INFORMATION
  Report Type: 
  Country: None (occurrence: None)
  Receive Date: 20120323
  Receipt Date: 20120316
  Transmission Date: 20120608
  Serious: Yes (Other)
  Sender: FDA-Public Use
  Company Number: BR-PFIZER INC-2012070695

PATIENT
  Sex: Female

DRUGS (3)
  1. CLONAZEPAM [Concomitant]
     Indication: DEPRESSION
     Dosage: UNK
  2. PRISTIQ [Suspect]
     Indication: DEPRESSION
     Dosage: UNK
     Route: 048
  3. LITHIUM [Concomitant]
     Indication: DEPRESSION
     Dosage: UNK

REACTIONS (9)
  - MALAISE [None]
  - KIDNEY INFECTION [None]
  - WITHDRAWAL SYNDROME [None]
  - MUSCLE CONTRACTIONS INVOLUNTARY [None]
  - VOMITING [None]
  - DIARRHOEA [None]
  - DECREASED APPETITE [None]
  - TREMOR [None]
  - NERVOUSNESS [None]
